FAERS Safety Report 7761177-3 (Version None)
Quarter: 2011Q3

REPORT INFORMATION
  Report Type: 
  Country: None (occurrence: None)
  Receive Date: 20110915
  Receipt Date: 20110831
  Transmission Date: 20111222
  Serious: No
  Sender: FDA-Public Use
  Company Number: US-1187754

PATIENT
  Age: 62 Year
  Sex: Female

DRUGS (5)
  1. BRIMONIDINE TARTRATE [Suspect]
     Indication: CATARACT OPERATION
     Dosage: OPHTHALMIC
     Route: 047
     Dates: start: 20110815
  2. TIMOLOL MALEATE [Suspect]
     Indication: CATARACT OPERATION
     Dosage: OPHTHALMIC
     Route: 047
     Dates: start: 20110815
  3. EPINEPHRINE [Concomitant]
  4. BSS PLUS [Suspect]
     Indication: INTRAOCULAR LENS IMPLANT
     Dosage: INTRAOCULAR
     Route: 031
     Dates: start: 20110815, end: 20110815
  5. OMNIPRED [Suspect]
     Indication: CATARACT OPERATION
     Dosage: OPHTHALMIC, 8 TIMES DAILY
     Route: 047
     Dates: start: 20110815

REACTIONS (2)
  - EYE INFLAMMATION [None]
  - POST PROCEDURAL COMPLICATION [None]
